FAERS Safety Report 5976839-8 (Version None)
Quarter: 2008Q4

REPORT INFORMATION
  Report Type: 
  Country: None (occurrence: None)
  Receive Date: 20081203
  Receipt Date: 20080214
  Transmission Date: 20090506
  Serious: No
  Sender: FDA-Public Use
  Company Number: US-AMGEN-KDL264777

PATIENT
  Sex: Female

DRUGS (2)
  1. ENBREL [Suspect]
     Indication: SPONDYLOARTHROPATHY
     Route: 058
     Dates: start: 20070901
  2. SULFASALAZINE [Concomitant]
     Route: 048
     Dates: start: 20060601

REACTIONS (2)
  - ASTHENIA [None]
  - VOMITING [None]
